FAERS Safety Report 7627469-3 (Version None)
Quarter: 2011Q3

REPORT INFORMATION
  Report Type: 
  Country: None (occurrence: None)
  Receive Date: 20110721
  Receipt Date: 20110711
  Transmission Date: 20111222
  Serious: Yes (Hospitalization)
  Sender: FDA-Public Use
  Company Number: US-ELI_LILLY_AND_COMPANY-US201107003119

PATIENT
  Sex: Female

DRUGS (1)
  1. HUMALOG [Suspect]
     Indication: DIABETES MELLITUS

REACTIONS (1)
  - CATARACT [None]
